FAERS Safety Report 4930029-6 (Version None)
Quarter: 2006Q1

REPORT INFORMATION
  Report Type: 
  Country: None (occurrence: None)
  Receive Date: 20060228
  Receipt Date: 20060220
  Transmission Date: 20060701
  Serious: Yes (Hospitalization)
  Sender: FDA-Public Use
  Company Number: 2006BI002871

PATIENT
  Age: 66 Year
  Sex: Female
  Weight: 65.318 kg

DRUGS (4)
  1. AVONEX [Suspect]
     Indication: MULTIPLE SCLEROSIS
     Dosage: 30 UG;QW;IM
     Route: 030
     Dates: start: 20040205, end: 20051222
  2. CHOLESTEROL PILL [Concomitant]
  3. SPIRONOLACTONE [Concomitant]
  4. SLEEPING MEDICATION [Concomitant]

REACTIONS (4)
  - BUNION [None]
  - CONDITION AGGRAVATED [None]
  - INSOMNIA [None]
  - OEDEMA PERIPHERAL [None]
